FAERS Safety Report 4410607-3 (Version None)
Quarter: 2004Q3

REPORT INFORMATION
  Report Type: 
  Country: None (occurrence: None)
  Receive Date: 20040728
  Receipt Date: 20040728
  Transmission Date: 20050211
  Serious: Yes (Life-Threatening, Hospitalization)
  Sender: FDA-Public Use
  Company Number: None

PATIENT
  Age: 90 Year
  Sex: Female
  Weight: 69.9 kg

DRUGS (12)
  1. IRBESARTAN [Suspect]
     Indication: HYPERTENSION
  2. ZOCOR [Concomitant]
  3. PRILOSEC [Concomitant]
  4. TOPROL-XL [Concomitant]
  5. CARDIZEM [Concomitant]
  6. ASPIRIN [Concomitant]
  7. POTASSIUM [Concomitant]
  8. BUMEX [Concomitant]
  9. GLUCOSAMINE [Concomitant]
  10. VIT C [Concomitant]
  11. MULTI-VITAMIN [Concomitant]
  12. MOM [Concomitant]

REACTIONS (9)
  - BLOOD CREATININE INCREASED [None]
  - BLOOD POTASSIUM INCREASED [None]
  - BRADYCARDIA [None]
  - BRAIN NATRIURETIC PEPTIDE INCREASED [None]
  - DYSPNOEA [None]
  - HYPERHIDROSIS [None]
  - NAUSEA [None]
  - PNEUMONIA [None]
  - TREATMENT NONCOMPLIANCE [None]
